FAERS Safety Report 15408621 (Version 1)
Quarter: 2018Q3

REPORT INFORMATION
  Report Type: Spontaneous
  Country: GB (occurrence: GB)
  Receive Date: 20180920
  Receipt Date: 20180920
  Transmission Date: 20181010
  Serious: Yes (Hospitalization, Other)
  Sender: FDA-Public Use
  Company Number: PHHY2018GB102499

PATIENT
  Age: 72 Year
  Sex: Male

DRUGS (2)
  1. DONEPEZIL. [Suspect]
     Active Substance: DONEPEZIL
     Indication: PRODUCT USED FOR UNKNOWN INDICATION
     Route: 065
  2. SINEMET CR [Suspect]
     Active Substance: CARBIDOPA\LEVODOPA
     Indication: PARKINSON^S DISEASE
     Dosage: UNK
     Route: 048

REACTIONS (11)
  - Left ventricular dysfunction [Unknown]
  - Fibula fracture [Unknown]
  - Hyperhidrosis [Unknown]
  - Loss of control of legs [Recovering/Resolving]
  - Ocular hyperaemia [Recovering/Resolving]
  - Aggression [Unknown]
  - Loss of consciousness [Unknown]
  - Dementia [Unknown]
  - Gait disturbance [Not Recovered/Not Resolved]
  - Urinary tract infection [Recovering/Resolving]
  - Inappropriate schedule of drug administration [Unknown]

NARRATIVE: CASE EVENT DATE: 2016
